FAERS Safety Report 6687966-4 (Version None)
Quarter: 2010Q2

REPORT INFORMATION
  Report Type: 
  Country: None (occurrence: None)
  Receive Date: 20100420
  Receipt Date: 20100413
  Transmission Date: 20101027
  Serious: Yes (Other)
  Sender: FDA-Public Use
  Company Number: US-B.I. PHARMACEUTICALS,INC./RIDGEFIELD-2010-BP-04415PF

PATIENT
  Sex: Female
  Weight: 110.68 kg

DRUGS (6)
  1. SPIRIVA [Suspect]
     Indication: EMPHYSEMA
     Dosage: 18 MCG
     Route: 055
     Dates: start: 20040101
  2. CHANTIX [Suspect]
     Indication: SMOKING CESSATION THERAPY
     Dosage: 0.5 MG
     Route: 048
     Dates: start: 20070101
  3. ADVAIR DISKUS 100/50 [Concomitant]
  4. CEPHEL 24 [Concomitant]
  5. ALBUTEROL [Concomitant]
  6. ALPRAZOLAM [Concomitant]

REACTIONS (15)
  - APHONIA [None]
  - ARTHRITIS [None]
  - ASTHENIA [None]
  - BRONCHITIS [None]
  - CHEST PAIN [None]
  - DYSPNOEA [None]
  - GAIT DISTURBANCE [None]
  - LUNG INFECTION [None]
  - NAUSEA [None]
  - ORAL DISCHARGE [None]
  - PHARYNGITIS [None]
  - RHINORRHOEA [None]
  - SINUSITIS [None]
  - VITAMIN D DEFICIENCY [None]
  - WEIGHT DECREASED [None]
